FAERS Safety Report 12168127 (Version 1)
Quarter: 2016Q1

REPORT INFORMATION
  Report Type: Spontaneous
  Country: US (occurrence: None)
  Receive Date: 20160309
  Receipt Date: 20160309
  Transmission Date: 20160526
  Serious: Yes (Hospitalization)
  Sender: FDA-Public Use
  Company Number: None

PATIENT
  Age: 12 Year
  Sex: Male
  Weight: 40.2 kg

DRUGS (6)
  1. CYTARABINE. [Suspect]
     Active Substance: CYTARABINE
     Dates: end: 20151211
  2. VINCRISTINE SULFATE. [Suspect]
     Active Substance: VINCRISTINE SULFATE
     Dates: end: 20160104
  3. METHOTREXATE [Suspect]
     Active Substance: METHOTREXATE
     Dates: end: 20150111
  4. DAUNORUBICIN [Suspect]
     Active Substance: DAUNORUBICIN
     Dates: end: 20160104
  5. DEXAMETHASONE. [Suspect]
     Active Substance: DEXAMETHASONE
     Dates: end: 20160110
  6. ONCASPAR [Suspect]
     Active Substance: PEGASPARGASE
     Dates: end: 20151231

REACTIONS (12)
  - Necrosis [None]
  - Eye pain [None]
  - Eschar [None]
  - Disease progression [None]
  - Bone erosion [None]
  - Cheilosis [None]
  - Eye movement disorder [None]
  - Palatal disorder [None]
  - Eye excision [None]
  - Sinusitis fungal [None]
  - Erythema [None]
  - Eye swelling [None]

NARRATIVE: CASE EVENT DATE: 20160116
